FAERS Safety Report 8148044-0 (Version None)
Quarter: 2012Q1

REPORT INFORMATION
  Report Type: 
  Country: None (occurrence: None)
  Receive Date: 20120218
  Receipt Date: 20110412
  Transmission Date: 20120608
  Serious: No
  Sender: FDA-Public Use
  Company Number: US-ALLERGAN-1105120US

PATIENT
  Sex: Female

DRUGS (2)
  1. BOTOX COSMETIC [Suspect]
     Indication: SKIN WRINKLING
  2. BOTOX COSMETIC [Suspect]
     Indication: MIGRAINE
     Dosage: UNK
     Dates: start: 20080201, end: 20080201

REACTIONS (1)
  - DYSPHAGIA [None]
